FAERS Safety Report 17037720 (Version 1)
Quarter: 2019Q4

REPORT INFORMATION
  Report Type: Spontaneous
  Country: US (occurrence: US)
  Receive Date: 20191115
  Receipt Date: 20191115
  Transmission Date: 20200122
  Serious: Yes (Other)
  Sender: FDA-Public Use
  Company Number: US-MYLANLABS-2019M1109064

PATIENT
  Sex: Male

DRUGS (1)
  1. ALPRAZOLAM TABLETS, USP [Suspect]
     Active Substance: ALPRAZOLAM
     Indication: PRODUCT USED FOR UNKNOWN INDICATION
     Dosage: 0.5 MILLIGRAM
     Route: 048

REACTIONS (6)
  - Neoplasm malignant [Unknown]
  - Polyp [Unknown]
  - Internal haemorrhage [Unknown]
  - Hypokinesia [Unknown]
  - Ulcer [Unknown]
  - Recalled product administered [Unknown]
